FAERS Safety Report 7731711-8 (Version None)
Quarter: 2011Q3

REPORT INFORMATION
  Report Type: 
  Country: None (occurrence: None)
  Receive Date: 20110906
  Receipt Date: 20110624
  Transmission Date: 20111222
  Serious: No
  Sender: FDA-Public Use
  Company Number: US-AMGEN-USASP2011032404

PATIENT
  Age: 83 Year
  Sex: Female

DRUGS (3)
  1. MULTIVITAMIN                       /00097801/ [Concomitant]
     Dosage: 1 UNK, QD
  2. PROLIA [Suspect]
     Indication: OSTEOPOROSIS POSTMENOPAUSAL
     Dosage: 60 MG, Q6MO
     Dates: start: 20110112
  3. CALCIUM CARBONATE [Concomitant]
     Dosage: 2 UNK, QD

REACTIONS (3)
  - INSOMNIA [None]
  - BONE PAIN [None]
  - WEIGHT INCREASED [None]
